FAERS Safety Report 13080916 (Version 4)
Quarter: 2018Q2

REPORT INFORMATION
  Report Type: Spontaneous
  Country: US (occurrence: US)
  Receive Date: 20170103
  Receipt Date: 20180413
  Transmission Date: 20180711
  Serious: Yes (Other)
  Sender: FDA-Public Use
  Company Number: US-BAUSCH-BL-2016-025725

PATIENT
  Age: 50 Year
  Sex: Female
  Weight: 63.05 kg

DRUGS (5)
  1. XENAZINE [Suspect]
     Active Substance: TETRABENAZINE
     Indication: DYSKINESIA
     Dosage: 2-3 TIMES DAILY
     Route: 048
     Dates: start: 20111203
  2. XENAZINE [Suspect]
     Active Substance: TETRABENAZINE
     Route: 048
     Dates: start: 201605
  3. XENAZINE [Suspect]
     Active Substance: TETRABENAZINE
     Route: 048
     Dates: start: 20140725
  4. XENAZINE [Suspect]
     Active Substance: TETRABENAZINE
     Dosage: 1/2 TABLET TWICE DAILY, MAY TAKE A THIRD TIME
     Route: 048
     Dates: start: 20170821, end: 20180301
  5. XENAZINE [Suspect]
     Active Substance: TETRABENAZINE
     Indication: DYSTONIA
     Route: 048
     Dates: start: 20120130

REACTIONS (9)
  - Off label use [Not Recovered/Not Resolved]
  - Extrasystoles [Unknown]
  - Tremor [Unknown]
  - Balance disorder [Unknown]
  - Drug administration error [Unknown]
  - Cardiac flutter [Unknown]
  - Pain in extremity [Unknown]
  - Long QT syndrome [Unknown]
  - Depression [Unknown]

NARRATIVE: CASE EVENT DATE: 20120130
